FAERS Safety Report 16984586 (Version 1)
Quarter: 2019Q4

REPORT INFORMATION
  Report Type: Spontaneous
  Country: US (occurrence: US)
  Receive Date: 20190917
  Receipt Date: 20190917
  Transmission Date: 20200122
  Serious: Yes (Hospitalization, Other)
  Sender: FDA-Public Use
  Company Number: None

PATIENT
  Age: 71 Year
  Sex: Male

DRUGS (1)
  1. TEMOZOLOMIDE. [Suspect]
     Active Substance: TEMOZOLOMIDE
     Route: 048
     Dates: start: 20190715, end: 20190802

REACTIONS (4)
  - Ear infection [None]
  - Thirst decreased [None]
  - Pyrexia [None]
  - Otorrhoea [None]

NARRATIVE: CASE EVENT DATE: 20190715
